FAERS Safety Report 6466931-6 (Version None)
Quarter: 2009Q4

REPORT INFORMATION
  Report Type: 
  Country: None (occurrence: None)
  Receive Date: 20091202
  Receipt Date: 20091124
  Transmission Date: 20100525
  Serious: Yes (Other)
  Sender: FDA-Public Use
  Company Number: FR-JNJFOC-20091107478

PATIENT
  Sex: Male

DRUGS (5)
  1. NIZORAL [Suspect]
     Indication: PITUITARY-DEPENDENT CUSHING'S SYNDROME
     Route: 048
     Dates: start: 20090916, end: 20091102
  2. ALDACTONE [Concomitant]
  3. CITALOPRAM HYDROBROMIDE [Concomitant]
  4. METOPIRONE [Concomitant]
  5. TOPALGIC [Concomitant]

REACTIONS (3)
  - CYTOLYTIC HEPATITIS [None]
  - HEPATITIS CHOLESTATIC [None]
  - OFF LABEL USE [None]
